FAERS Safety Report 5750943-1 (Version None)
Quarter: 2008Q2

REPORT INFORMATION
  Report Type: 
  Country: None (occurrence: None)
  Receive Date: 20080528
  Receipt Date: 20080514
  Transmission Date: 20081010
  Serious: Yes (Hospitalization)
  Sender: FDA-Public Use
  Company Number: JP-JNJFOC-20080502832

PATIENT
  Age: 8 Decade
  Sex: Female

DRUGS (19)
  1. FENTANYL-100 [Suspect]
     Route: 062
  2. FENTANYL-100 [Suspect]
     Indication: CANCER PAIN
     Route: 062
  3. FENTANYL-100 [Suspect]
     Indication: PAIN
     Route: 062
  4. FENTANYL-100 [Suspect]
     Route: 062
  5. LOXONIN [Concomitant]
     Indication: CANCER PAIN
     Route: 048
  6. MUCOSTA [Concomitant]
     Indication: GASTRITIS PROPHYLAXIS
     Route: 048
  7. NOVAMIN [Concomitant]
     Indication: PROPHYLAXIS OF NAUSEA AND VOMITING
     Route: 048
  8. DIOVAN [Concomitant]
     Indication: HYPERTENSION
     Route: 048
  9. PAXIL [Concomitant]
     Route: 048
  10. ALFAROL [Concomitant]
     Indication: OSTEOPOROSIS PROPHYLAXIS
     Route: 048
  11. SENNA [Concomitant]
     Indication: CONSTIPATION
     Route: 048
  12. NEUQUINON [Concomitant]
     Indication: CARDIOVASCULAR EVENT PROPHYLAXIS
     Route: 048
  13. VITAMIN [Concomitant]
     Indication: VITAMIN SUPPLEMENTATION
     Route: 048
  14. TOCOPHEROL CONCENTRATE CAP [Concomitant]
     Indication: VITAMIN SUPPLEMENTATION
     Route: 048
  15. LACTEC D [Concomitant]
     Indication: FLUID REPLACEMENT
     Route: 042
  16. FAMOTIDINE [Concomitant]
     Route: 042
  17. VEEN D [Concomitant]
     Indication: FLUID REPLACEMENT
     Route: 042
  18. VITAMEDIN [Concomitant]
     Indication: VITAMIN SUPPLEMENTATION
     Route: 042
  19. HEPARIN NA LOCK [Concomitant]
     Indication: PROPHYLAXIS
     Route: 042

REACTIONS (1)
  - PNEUMONIA ASPIRATION [None]
